FAERS Safety Report 15963217 (Version 4)
Quarter: 2019Q4

REPORT INFORMATION
  Report Type: Spontaneous
  Country: DE (occurrence: DE)
  Receive Date: 20190214
  Receipt Date: 20191212
  Transmission Date: 20200122
  Serious: Yes (Other)
  Sender: FDA-Public Use
  Company Number: DE-MYLANLABS-2019M1008416

PATIENT
  Sex: Male

DRUGS (1)
  1. LEPONEX [Suspect]
     Active Substance: CLOZAPINE
     Indication: PRODUCT USED FOR UNKNOWN INDICATION
     Dosage: UNK

REACTIONS (15)
  - Altered state of consciousness [Unknown]
  - Sleep deficit [Unknown]
  - Aggression [Not Recovered/Not Resolved]
  - Dissociation [Unknown]
  - Thinking abnormal [Not Recovered/Not Resolved]
  - Headache [Not Recovered/Not Resolved]
  - Dependence [Unknown]
  - Acne [Unknown]
  - Schizophrenia [Unknown]
  - Obsessive thoughts [Not Recovered/Not Resolved]
  - Suicidal ideation [Unknown]
  - Hypertrichosis [Unknown]
  - Seborrhoea [Unknown]
  - Virilism [Unknown]
  - Derealisation [Not Recovered/Not Resolved]
